FAERS Safety Report 23580368 (Version 2)
Quarter: 2024Q2

REPORT INFORMATION
  Report Type: Spontaneous
  Country: US (occurrence: US)
  Receive Date: 20240229
  Receipt Date: 20240527
  Transmission Date: 20240715
  Serious: Yes (Other)
  Sender: FDA-Public Use
  Company Number: US-BRISTOL-MYERS SQUIBB COMPANY-2024-028233

PATIENT
  Age: 75 Year
  Sex: Female

DRUGS (1)
  1. REVLIMID [Suspect]
     Active Substance: LENALIDOMIDE
     Indication: Plasma cell myeloma in remission
     Dosage: TAKE 1 CAPSULE BY MOUTH EVERY 24 HOURS. START ON DAY 1 THROUGH AND INCLUDING DAY 28
     Route: 048

REACTIONS (8)
  - Therapy interrupted [Recovered/Resolved]
  - Product supply issue [Recovered/Resolved]
  - Diarrhoea [Recovering/Resolving]
  - Insomnia [Recovering/Resolving]
  - Contusion [Unknown]
  - Fatigue [Unknown]
  - Product availability issue [Recovered/Resolved]
  - Off label use [Unknown]
